FAERS Safety Report 11277404 (Version 1)
Quarter: 2015Q3

REPORT INFORMATION
  Report Type: Report from Study
  Country: GB (occurrence: GB)
  Receive Date: 20150716
  Receipt Date: 20150716
  Transmission Date: 20151125
  Serious: Yes (Other)
  Sender: FDA-Public Use
  Company Number: GB-PFIZER INC-2015229074

PATIENT
  Age: 49 Year
  Sex: Female

DRUGS (20)
  1. PHENYTOIN. [Suspect]
     Active Substance: PHENYTOIN
     Indication: MYOCLONUS
  2. LAMOTRIGINE. [Concomitant]
     Active Substance: LAMOTRIGINE
     Indication: FEBRILE CONVULSION
     Dosage: UNK
  3. PHENYTOIN. [Suspect]
     Active Substance: PHENYTOIN
     Indication: SEIZURE
  4. LAMOTRIGINE. [Concomitant]
     Active Substance: LAMOTRIGINE
     Indication: SEIZURE
  5. CLONAZEPAM. [Concomitant]
     Active Substance: CLONAZEPAM
     Indication: SEIZURE
  6. LAMOTRIGINE. [Concomitant]
     Active Substance: LAMOTRIGINE
     Indication: COMPLEX PARTIAL SEIZURES
  7. LAMOTRIGINE. [Concomitant]
     Active Substance: LAMOTRIGINE
     Indication: MYOCLONUS
  8. CLONAZEPAM. [Concomitant]
     Active Substance: CLONAZEPAM
     Indication: COMPLEX PARTIAL SEIZURES
  9. VIGABATRINE [Concomitant]
     Active Substance: VIGABATRIN
     Indication: MYOCLONUS
  10. CLONAZEPAM. [Concomitant]
     Active Substance: CLONAZEPAM
     Indication: FEBRILE CONVULSION
     Dosage: UNK
  11. CARBAMAZEPINE. [Concomitant]
     Active Substance: CARBAMAZEPINE
     Indication: FEBRILE CONVULSION
     Dosage: UNK
  12. CARBAMAZEPINE. [Concomitant]
     Active Substance: CARBAMAZEPINE
     Indication: COMPLEX PARTIAL SEIZURES
  13. VIGABATRINE [Concomitant]
     Active Substance: VIGABATRIN
     Indication: SEIZURE
  14. PHENYTOIN. [Suspect]
     Active Substance: PHENYTOIN
     Indication: COMPLEX PARTIAL SEIZURES
  15. VIGABATRINE [Concomitant]
     Active Substance: VIGABATRIN
     Indication: COMPLEX PARTIAL SEIZURES
  16. PHENYTOIN. [Suspect]
     Active Substance: PHENYTOIN
     Indication: FEBRILE CONVULSION
     Dosage: UNK
  17. CARBAMAZEPINE. [Concomitant]
     Active Substance: CARBAMAZEPINE
     Indication: SEIZURE
  18. CARBAMAZEPINE. [Concomitant]
     Active Substance: CARBAMAZEPINE
     Indication: MYOCLONUS
  19. CLONAZEPAM. [Concomitant]
     Active Substance: CLONAZEPAM
     Indication: MYOCLONUS
  20. VIGABATRINE [Concomitant]
     Active Substance: VIGABATRIN
     Indication: FEBRILE CONVULSION
     Dosage: UNK

REACTIONS (3)
  - Toxicity to various agents [Unknown]
  - Cerebellar syndrome [Unknown]
  - Neurodegenerative disorder [Unknown]
